FAERS Safety Report 9116943 (Version 11)
Quarter: 2013Q4

REPORT INFORMATION
  Report Type: Spontaneous
  Country: US (occurrence: US)
  Receive Date: 20130225
  Receipt Date: 20131101
  Transmission Date: 20140711
  Serious: No
  Sender: FDA-Public Use
  Company Number: US-PFIZER INC-2013068165

PATIENT
  Age: 82 Year
  Sex: Male
  Weight: 86.17 kg

DRUGS (13)
  1. SUTENT [Suspect]
     Indication: RENAL CELL CARCINOMA
     Dosage: 50 MG, 1X/DAY 4 WEEKS ON FOLLOWED BY 2 WEEKS OFF
     Route: 048
     Dates: start: 20130124
  2. SUTENT [Suspect]
     Dosage: 50 MG, 1X/DAY
     Route: 048
     Dates: start: 20130308
  3. SUTENT [Suspect]
     Dosage: 14 DAYS ON AND 7 DAYS OFF
     Route: 048
  4. SUTENT [Suspect]
     Dosage: 50 MG, UNK
     Route: 048
     Dates: end: 20131022
  5. ASPIRIN [Concomitant]
     Dosage: LOW DOSE
  6. TEKTURNA [Concomitant]
     Dosage: 300 MG, UNK
  7. FISH OIL [Concomitant]
     Dosage: UNK
  8. SIMVASTATIN [Concomitant]
     Dosage: 10 MG, UNK
  9. ATENOLOL/CHLORTHALIDONE [Concomitant]
     Dosage: 50/25 MG, UNK
  10. ATENOLOL [Concomitant]
     Dosage: UNK
  11. LEVOTHYROXINE [Concomitant]
     Dosage: 25 UG, UNK
  12. TEKAMLO [Concomitant]
     Dosage: UNK
  13. VITAMIN B12-ACTIVE [Concomitant]
     Dosage: UNK

REACTIONS (14)
  - Dyspepsia [Not Recovered/Not Resolved]
  - Dysgeusia [Not Recovered/Not Resolved]
  - Decreased appetite [Recovered/Resolved]
  - Oral pain [Recovered/Resolved]
  - Thyroid function test abnormal [Not Recovered/Not Resolved]
  - Cheilitis [Unknown]
  - Eye irritation [Unknown]
  - Asthenia [Unknown]
  - Blister [Unknown]
  - Fatigue [Unknown]
  - Dyspnoea [Unknown]
  - Blood count abnormal [Unknown]
  - Disease progression [Unknown]
  - Renal cell carcinoma [Unknown]
